FAERS Safety Report 6891893-7 (Version None)
Quarter: 2010Q3

REPORT INFORMATION
  Report Type: 
  Country: None (occurrence: None)
  Receive Date: 20100731
  Receipt Date: 20071126
  Transmission Date: 20110219
  Serious: No
  Sender: FDA-Public Use
  Company Number: US-PFIZER INC-2007099667

PATIENT
  Sex: Female
  Weight: 46.27 kg

DRUGS (7)
  1. NEURONTIN [Suspect]
     Indication: CYSTITIS INTERSTITIAL
  2. NEXIUM [Concomitant]
  3. ELMIRON [Concomitant]
  4. MARCAINE [Concomitant]
  5. SODIUM BICARBONATE [Concomitant]
  6. ATIVAN [Concomitant]
  7. RESTORIL [Concomitant]

REACTIONS (7)
  - BURNING SENSATION [None]
  - DRUG INEFFECTIVE [None]
  - FEELING HOT [None]
  - HYPOAESTHESIA [None]
  - NEUROPATHY PERIPHERAL [None]
  - PARAESTHESIA [None]
  - SENSORY DISTURBANCE [None]
